FAERS Safety Report 5933728-2 (Version None)
Quarter: 2008Q4

REPORT INFORMATION
  Report Type: 
  Country: None (occurrence: None)
  Receive Date: 20081029
  Receipt Date: 20081026
  Transmission Date: 20090506
  Serious: Yes (Hospitalization)
  Sender: FDA-Public Use
  Company Number: VE-BRISTOL-MYERS SQUIBB COMPANY-14384192

PATIENT
  Age: 77 Year
  Sex: Male

DRUGS (2)
  1. BARACLUDE [Suspect]
     Indication: HEPATITIS B
  2. ATORVASTATIN [Concomitant]
     Indication: HYPERTENSION

REACTIONS (2)
  - MUSCULAR WEAKNESS [None]
  - PARAESTHESIA [None]
